FAERS Safety Report 8293014-5 (Version None)
Quarter: 2012Q2

REPORT INFORMATION
  Report Type: 
  Country: None (occurrence: None)
  Receive Date: 20120417
  Receipt Date: 20110922
  Transmission Date: 20120825
  Serious: Yes (Hospitalization, Other)
  Sender: FDA-Public Use
  Company Number: US-ASTRAZENECA-2011SE38735

PATIENT
  Age: 66 Year
  Sex: Female

DRUGS (1)
  1. NEXIUM [Suspect]
     Route: 048

REACTIONS (6)
  - UPPER LIMB FRACTURE [None]
  - BRONCHITIS [None]
  - ASTHMA [None]
  - BLOOD PRESSURE DECREASED [None]
  - DEHYDRATION [None]
  - ROAD TRAFFIC ACCIDENT [None]
